FAERS Safety Report 7794214-0 (Version None)
Quarter: 2011Q4

REPORT INFORMATION
  Report Type: 
  Country: None (occurrence: None)
  Receive Date: 20111004
  Receipt Date: 20101115
  Transmission Date: 20120403
  Serious: Yes (Other)
  Sender: FDA-Public Use
  Company Number: US-VIIV HEALTHCARE LIMITED-A0892564A

PATIENT

DRUGS (2)
  1. SELZENTRY [Suspect]
     Indication: HIV INFECTION
     Route: 048
  2. UNKNOWN [Concomitant]

REACTIONS (1)
  - CONVULSION [None]
